FAERS Safety Report 24767262 (Version 4)
Quarter: 2025Q2

REPORT INFORMATION
  Report Type: Report from Study
  Country: US (occurrence: US)
  Receive Date: 20241223
  Receipt Date: 20250522
  Transmission Date: 20250716
  Serious: Yes (Hospitalization)
  Sender: EISAI
  Company Number: US-Eisai-EC-2024-181312

PATIENT
  Age: 56 Year
  Sex: Male
  Weight: 60.6 kg

DRUGS (3)
  1. LENVATINIB [Suspect]
     Active Substance: LENVATINIB
     Indication: Neuroendocrine cancer of the prostate metastatic
     Dates: start: 20241122, end: 20241203
  2. LENVATINIB [Suspect]
     Active Substance: LENVATINIB
  3. PEMBROLIZUMAB [Suspect]
     Active Substance: PEMBROLIZUMAB
     Indication: Neuroendocrine cancer of the prostate metastatic
     Dates: start: 20241122, end: 20250311

REACTIONS (2)
  - Fatigue [Recovered/Resolved]
  - Anaemia [Recovered/Resolved with Sequelae]

NARRATIVE: CASE EVENT DATE: 20241203
